FAERS Safety Report 8029331-3 (Version None)
Quarter: 2012Q1

REPORT INFORMATION
  Report Type: 
  Country: None (occurrence: None)
  Receive Date: 20120106
  Receipt Date: 20120102
  Transmission Date: 20120608
  Serious: Yes (Life-Threatening, Hospitalization)
  Sender: FDA-Public Use
  Company Number: IT-ASTRAZENECA-2011SE77947

PATIENT
  Age: 57 Year
  Sex: Female

DRUGS (2)
  1. SEROQUEL XR [Suspect]
     Indication: SUICIDAL IDEATION
     Route: 048
  2. SEROQUEL XR [Suspect]
     Route: 048

REACTIONS (4)
  - SUICIDE ATTEMPT [None]
  - CONFUSIONAL STATE [None]
  - INTENTIONAL OVERDOSE [None]
  - AGITATION [None]
